FAERS Safety Report 12475132 (Version 1)
Quarter: 2016Q2

REPORT INFORMATION
  Report Type: Report from Study
  Country: US (occurrence: US)
  Receive Date: 20160617
  Receipt Date: 20160617
  Transmission Date: 20160815
  Serious: Yes (Other)
  Sender: FDA-Public Use
  Company Number: US-AMGEN-USASL2016074576

PATIENT
  Age: 59 Year
  Sex: Female

DRUGS (1)
  1. NPLATE [Suspect]
     Active Substance: ROMIPLOSTIM
     Indication: IMMUNE THROMBOCYTOPENIC PURPURA
     Dosage: QWK
     Route: 065
     Dates: start: 201604

REACTIONS (7)
  - Decreased interest [Unknown]
  - Fatigue [Unknown]
  - Feeling abnormal [Unknown]
  - Bipolar I disorder [Unknown]
  - Lethargy [Unknown]
  - Platelet count decreased [Unknown]
  - Stress [Unknown]

NARRATIVE: CASE EVENT DATE: 201604
